FAERS Safety Report 6186175-5 (Version None)
Quarter: 2009Q2

REPORT INFORMATION
  Report Type: 
  Country: None (occurrence: None)
  Receive Date: 20090511
  Receipt Date: 20090429
  Transmission Date: 20091009
  Serious: Yes (Death, Hospitalization)
  Sender: FDA-Public Use
  Company Number: GB-PFIZER INC-2008154549

PATIENT
  Age: 35 Year

DRUGS (3)
  1. CHAMPIX [Suspect]
     Dosage: 1 MG, 2X/DAY
     Route: 048
     Dates: start: 20080928, end: 20081002
  2. CARVEDILOL [Concomitant]
  3. RAMIPRIL [Concomitant]

REACTIONS (1)
  - CARDIAC FAILURE [None]
